FAERS Safety Report 20916899 (Version 1)
Quarter: 2022Q2

REPORT INFORMATION
  Report Type: Other
  Country: IN (occurrence: None)
  Receive Date: 20220605
  Receipt Date: 20220605
  Transmission Date: 20220721
  Serious: Yes (Hospitalization, Other)
  Sender: FDA-Public Use
  Company Number: IN-Laurus-001256

PATIENT
  Age: 54 Year
  Sex: Female

DRUGS (1)
  1. EFAVIRENZ\LAMIVUDINE\TENOFOVIR DISOPROXIL FUMARATE [Suspect]
     Active Substance: EFAVIRENZ\LAMIVUDINE\TENOFOVIR DISOPROXIL FUMARATE
     Indication: HIV infection
     Dosage: TDF (300 MG), LAMIVUDINE (300 MG), AND EFAVIRENZ (600 MG) ONCE A DAY AT BEDTIME FOR THE PAST 6 YEARS

REACTIONS (11)
  - Nephrolithiasis [Unknown]
  - Calculus urinary [Unknown]
  - Fanconi syndrome [Recovered/Resolved]
  - Femoral neck fracture [Recovered/Resolved]
  - Acute kidney injury [Recovered/Resolved]
  - Metabolic acidosis [Recovered/Resolved]
  - Pulmonary embolism [Recovered/Resolved]
  - Condition aggravated [Recovered/Resolved]
  - Urinary tract infection [Recovered/Resolved]
  - Sepsis [Recovered/Resolved]
  - Osteomalacia [Recovered/Resolved]
